FAERS Safety Report 9637679 (Version 3)
Quarter: 2013Q4

REPORT INFORMATION
  Report Type: Spontaneous
  Country: JP (occurrence: JP)
  Receive Date: 20131022
  Receipt Date: 20131119
  Transmission Date: 20140711
  Serious: Yes (Hospitalization)
  Sender: FDA-Public Use
  Company Number: JP-NAPPMUNDI-GBR-2013-0016057

PATIENT
  Age: 73 Year
  Sex: Female

DRUGS (3)
  1. OXYCODONE HCL CONTROLLED RELEASE TABLETS [Suspect]
     Indication: CANCER PAIN
     Dosage: 5 MG, BID
     Route: 048
  2. IRBETAN [Suspect]
     Indication: HYPERTENSION
     Dosage: 100 MG, DAILY
     Route: 048
     Dates: end: 20130220
  3. NESINA [Suspect]
     Indication: TYPE 2 DIABETES MELLITUS
     Dosage: 25 MG, DAILY
     Route: 048
     Dates: end: 20130220

REACTIONS (1)
  - Interstitial lung disease [Recovering/Resolving]
